FAERS Safety Report 25146816 (Version 1)
Quarter: 2025Q2

REPORT INFORMATION
  Report Type: Spontaneous
  Country: US (occurrence: US)
  Receive Date: 20250401
  Receipt Date: 20250401
  Transmission Date: 20250716
  Serious: Yes (Hospitalization)
  Sender: BEXIMCO PHARMACEUTICALS
  Company Number: US-BEXIMCO-2025BEX00020

PATIENT
  Age: 77 Year
  Sex: Male

DRUGS (5)
  1. FLECAINIDE ACETATE [Suspect]
     Active Substance: FLECAINIDE ACETATE
     Indication: Atrial fibrillation
  2. LACOSAMIDE [Suspect]
     Active Substance: LACOSAMIDE
     Indication: Mental status changes
  3. LACOSAMIDE [Suspect]
     Active Substance: LACOSAMIDE
     Indication: COVID-19
  4. BENZONATATE [Suspect]
     Active Substance: BENZONATATE
  5. APIXABAN [Concomitant]
     Active Substance: APIXABAN
     Indication: Atrial fibrillation

REACTIONS (6)
  - Drug interaction [Recovered/Resolved]
  - Atrioventricular block first degree [Recovered/Resolved]
  - Electrocardiogram QT prolonged [Recovered/Resolved]
  - Toxicity to various agents [Unknown]
  - Sinus bradycardia [Recovered/Resolved]
  - Bundle branch block right [Recovered/Resolved]
